FAERS Safety Report 19865161 (Version 10)
Quarter: 2022Q4

REPORT INFORMATION
  Report Type: Report from Study
  Country: JP (occurrence: JP)
  Receive Date: 20210921
  Receipt Date: 20221216
  Transmission Date: 20230113
  Serious: Yes (Death, Hospitalization, Other)
  Sender: FDA-Public Use
  Company Number: JP-TAKEDA-2021TJP093046

PATIENT
  Age: 79 Year
  Sex: Male
  Weight: 69.5 kg

DRUGS (6)
  1. LEUPLIN [Suspect]
     Active Substance: LEUPROLIDE ACETATE
     Indication: Bulbospinal muscular atrophy congenital
     Dosage: 11.25 MILLIGRAM, Q3MONTHS
     Route: 058
     Dates: start: 20171019, end: 20210408
  2. ENALAPRIL MALEATE [Concomitant]
     Active Substance: ENALAPRIL MALEATE
     Indication: Pneumonia aspiration
     Dosage: 5 MILLIGRAM
     Route: 065
  3. BROTIZOLAM [Concomitant]
     Active Substance: BROTIZOLAM
     Indication: Product used for unknown indication
     Dosage: 0.25 MILLIGRAM
     Route: 065
     Dates: end: 20191003
  4. CARBOCYSTEINE [Concomitant]
     Active Substance: CARBOCYSTEINE
     Indication: Dysphagia
     Dosage: 250 MILLIGRAM
     Route: 065
  5. MIYA-BM [Concomitant]
     Active Substance: CLOSTRIDIUM BUTYRICUM SPORES STRAIN M-55
     Indication: Product used for unknown indication
     Dosage: 3 GRAM
     Route: 065
  6. SITAFLOXACIN [Concomitant]
     Active Substance: SITAFLOXACIN
     Indication: Pneumonia
     Dosage: 100 MILLIGRAM
     Route: 065
     Dates: start: 20180308, end: 20180314

REACTIONS (7)
  - Hypercapnia [Fatal]
  - Gastrostomy [Recovered/Resolved]
  - Bulbospinal muscular atrophy congenital [Not Recovered/Not Resolved]
  - Tracheostomy [Recovered/Resolved]
  - Dysphagia [Not Recovered/Not Resolved]
  - Pneumonia aspiration [Not Recovered/Not Resolved]
  - Pneumonia [Fatal]

NARRATIVE: CASE EVENT DATE: 20210528
